FAERS Safety Report 20194653 (Version 2)
Quarter: 2021Q4

REPORT INFORMATION
  Report Type: Spontaneous
  Country: IN (occurrence: IN)
  Receive Date: 20211216
  Receipt Date: 20211220
  Transmission Date: 20220303
  Serious: Yes (Other)
  Sender: FDA-Public Use
  Company Number: IN-BAYER-2021A266096

PATIENT

DRUGS (2)
  1. AFLIBERCEPT [Suspect]
     Active Substance: AFLIBERCEPT
     Indication: Product used for unknown indication
     Dosage: 2 MG, ONCE, FIRST INJECTION
     Route: 031
  2. AFLIBERCEPT [Suspect]
     Active Substance: AFLIBERCEPT
     Dosage: 2 MG, ONCE, SECOND INJECTION
     Route: 031

REACTIONS (3)
  - Blindness [Recovering/Resolving]
  - Retinal pigment epithelial tear [Recovered/Resolved]
  - Retinal detachment [Recovered/Resolved]
